FAERS Safety Report 13661573 (Version 1)
Quarter: 2017Q2

REPORT INFORMATION
  Report Type: Spontaneous
  Country: US (occurrence: US)
  Receive Date: 20170616
  Receipt Date: 20170616
  Transmission Date: 20170830
  Serious: No
  Sender: FDA-Public Use
  Company Number: US-US WORLDMEDS, LLC-USW201608-000592

PATIENT
  Age: 81 Year
  Sex: Female
  Weight: 71.66 kg

DRUGS (10)
  1. PANTOPRAZOLE SOD DR [Concomitant]
     Dates: start: 20150401
  2. AMBIEN [Concomitant]
     Active Substance: ZOLPIDEM TARTRATE
     Dates: start: 20111010
  3. ATIVAN [Concomitant]
     Active Substance: LORAZEPAM
     Dates: start: 20130801
  4. APOKYN [Suspect]
     Active Substance: APOMORPHINE HYDROCHLORIDE
     Indication: PARKINSON^S DISEASE
     Route: 058
     Dates: start: 20150908
  5. NEUPRO [Concomitant]
     Active Substance: ROTIGOTINE
     Dates: start: 20150608
  6. OXYDODONE HCL [Concomitant]
     Dates: start: 20150809
  7. SINEMET [Concomitant]
     Active Substance: CARBIDOPA\LEVODOPA
     Dates: start: 20141202
  8. ATENOLOL. [Concomitant]
     Active Substance: ATENOLOL
     Dates: start: 20150504
  9. VENLAFAXINE ER [Concomitant]
     Active Substance: VENLAFAXINE HYDROCHLORIDE
     Dates: start: 20111011
  10. COUMADIN [Concomitant]
     Active Substance: WARFARIN SODIUM
     Dates: start: 20150413

REACTIONS (2)
  - Injection site mass [Recovering/Resolving]
  - Contusion [Not Recovered/Not Resolved]

NARRATIVE: CASE EVENT DATE: 201605
